FAERS Safety Report 14355940 (Version 1)
Quarter: 2018Q1

REPORT INFORMATION
  Report Type: Spontaneous
  Country: US (occurrence: US)
  Receive Date: 20180105
  Receipt Date: 20180105
  Transmission Date: 20180509
  Serious: No
  Sender: FDA-Public Use
  Company Number: US-XTTRIUM LABORATORIES, INC-2039481

PATIENT
  Age: 37 Year
  Sex: Female
  Weight: 150 kg

DRUGS (5)
  1. BETADINE [Suspect]
     Active Substance: POVIDONE-IODINE
     Route: 061
  2. OPSITE [Suspect]
     Active Substance: POLYURETHANE
     Route: 061
  3. TEGADERM DRESSINGS [Suspect]
     Active Substance: 2-HYDROXYETHYL METHACRYLATE
     Route: 061
  4. REMODULIN [Suspect]
     Active Substance: TREPROSTINIL
     Indication: PULMONARY ARTERIAL HYPERTENSION
     Route: 041
     Dates: start: 20110713
  5. CHG [Suspect]
     Active Substance: ISOPROPYL ALCOHOL
     Route: 061

REACTIONS (2)
  - Application site urticaria [None]
  - Dermatitis contact [Unknown]

NARRATIVE: CASE EVENT DATE: 20110713
